FAERS Safety Report 9250961 (Version 1)
Quarter: 2013Q2

REPORT INFORMATION
  Report Type: Report from Study
  Country: US (occurrence: US)
  Receive Date: 20130424
  Receipt Date: 20130424
  Transmission Date: 20140414
  Serious: Yes (Other)
  Sender: FDA-Public Use
  Company Number: PHEH2013US009024

PATIENT
  Age: 67 Year
  Sex: Male
  Weight: 86.17 kg

DRUGS (6)
  1. GLEEVEC [Suspect]
     Dosage: 400 MG, QD
     Route: 048
  2. FLOMAX [Concomitant]
     Dosage: 0.4 MG, UNK
  3. XANAX [Concomitant]
     Dosage: 0.25 MG, UNK
  4. ATENOLOL [Concomitant]
     Dosage: 25 MG, UNK
  5. LEVOTHYROXIN [Concomitant]
     Dosage: 25 UG, UNK
  6. OMEGA 3 [Concomitant]

REACTIONS (2)
  - Appendicitis perforated [Unknown]
  - Drug intolerance [Unknown]
